FAERS Safety Report 6178563-8 (Version None)
Quarter: 2009Q2

REPORT INFORMATION
  Report Type: 
  Country: None (occurrence: None)
  Receive Date: 20090504
  Receipt Date: 20080730
  Transmission Date: 20091009
  Serious: No
  Sender: FDA-Public Use
  Company Number: US-ALEXION-A200800181

PATIENT

DRUGS (7)
  1. SOLIRIS [Suspect]
     Indication: PAROXYSMAL NOCTURNAL HAEMOGLOBINURIA
     Dosage: 600 MG, SINGLE
     Route: 042
     Dates: start: 20080725, end: 20080725
  2. SOLIRIS [Suspect]
     Dosage: 600 MG, SINGLE
     Route: 042
     Dates: start: 20080801, end: 20080801
  3. SOLIRIS [Suspect]
     Dosage: 600 MG, SINGLE
     Route: 042
     Dates: start: 20080808, end: 20080808
  4. SOLIRIS [Suspect]
     Dosage: 600 MG, SINGLE
     Route: 042
     Dates: start: 20080815, end: 20080815
  5. SOLIRIS [Suspect]
     Dosage: 900 MG, SINGLE
     Route: 042
     Dates: start: 20080821, end: 20080821
  6. FOLIC ACID [Concomitant]
  7. TYLENOL (CAPLET) [Concomitant]
     Indication: PREMEDICATION
     Dosage: UNK, SINGLE
     Route: 048
     Dates: start: 20080801, end: 20080801

REACTIONS (4)
  - ARTHRALGIA [None]
  - HAEMOGLOBIN DECREASED [None]
  - HEADACHE [None]
  - VOMITING [None]
